FAERS Safety Report 5022794-7 (Version None)
Quarter: 2006Q2

REPORT INFORMATION
  Report Type: 
  Country: None (occurrence: None)
  Receive Date: 20060426
  Receipt Date: 20060107
  Transmission Date: 20061013
  Serious: Yes (Other)
  Sender: FDA-Public Use
  Company Number: 2005157394

PATIENT
  Age: 47 Year
  Sex: Female

DRUGS (5)
  1. LYRICA [Suspect]
     Indication: NEURALGIA
     Dosage: 100 MG (50 MG, 2 IN 1 D), ORAL
     Route: 048
     Dates: start: 20051102, end: 20051115
  2. OXYCONTIN [Concomitant]
  3. FIORINAL WITH CODEINE (ACETYLSALICYLIC ACID, BUTALBITAL, CAFFEINE, COD [Concomitant]
  4. DILANTIN [Concomitant]
  5. XANAX [Concomitant]

REACTIONS (4)
  - CONFUSIONAL STATE [None]
  - PAIN IN JAW [None]
  - SEDATION [None]
  - VISION BLURRED [None]
